FAERS Safety Report 7136528-3 (Version None)
Quarter: 2010Q4

REPORT INFORMATION
  Report Type: 
  Country: None (occurrence: None)
  Receive Date: 20101206
  Receipt Date: 20080618
  Transmission Date: 20110411
  Serious: Yes (Death)
  Sender: FDA-Public Use
  Company Number: IT-ACTELION-A-CH2008-20959

PATIENT
  Age: 52 Year
  Sex: Female

DRUGS (4)
  1. TRACLEER [Suspect]
     Indication: PULMONARY ARTERIAL HYPERTENSION
     Route: 048
     Dates: start: 20021101
  2. GLYBURIDE [Concomitant]
  3. METFORMIN [Concomitant]
  4. EPOPROSTENOL SODIUM [Concomitant]

REACTIONS (1)
  - DEATH [None]
